FAERS Safety Report 20376784 (Version 9)
Quarter: 2022Q4

REPORT INFORMATION
  Report Type: Report from Study
  Country: CA (occurrence: CA)
  Receive Date: 20220125
  Receipt Date: 20221209
  Transmission Date: 20230112
  Serious: Yes (Other)
  Sender: FDA-Public Use
  Company Number: CA-OTSUKA-2022_002660

PATIENT
  Sex: Female

DRUGS (4)
  1. CEDAZURIDINE\DECITABINE [Suspect]
     Active Substance: CEDAZURIDINE\DECITABINE
     Indication: Myelodysplastic syndrome
     Dosage: UNK (1 TABLET ON DAY 1,3 AND 5 OF CYCLE)/4 PILLS PER CYCLE
     Route: 048
     Dates: start: 20220107
  2. CEDAZURIDINE\DECITABINE [Suspect]
     Active Substance: CEDAZURIDINE\DECITABINE
     Dosage: UNK, (CYCLE 2 WITH TWO TABLETS)
     Route: 065
  3. CEDAZURIDINE\DECITABINE [Suspect]
     Active Substance: CEDAZURIDINE\DECITABINE
     Dosage: UNK (4 PILLS/CYCLE)
     Route: 065
  4. CEDAZURIDINE\DECITABINE [Suspect]
     Active Substance: CEDAZURIDINE\DECITABINE
     Dosage: ONE TABLET EVERY TEN DAYS UP TO THREE OR FOUR TABLETS
     Route: 065

REACTIONS (21)
  - Intracranial aneurysm [Unknown]
  - Transfusion [Unknown]
  - Atrial fibrillation [Recovering/Resolving]
  - Head discomfort [Recovering/Resolving]
  - Ear pain [Unknown]
  - Facial pain [Unknown]
  - Ocular discomfort [Unknown]
  - Feeling hot [Unknown]
  - Photosensitivity reaction [Unknown]
  - Mydriasis [Unknown]
  - Coordination abnormal [Unknown]
  - Malaise [Unknown]
  - Burning sensation [Unknown]
  - Weight decreased [Unknown]
  - Tachycardia [Unknown]
  - Musculoskeletal stiffness [Unknown]
  - Paraesthesia [Unknown]
  - Epistaxis [Unknown]
  - Nausea [Unknown]
  - Diarrhoea [Unknown]
  - Product use issue [Unknown]
